FAERS Safety Report 6225007-3 (Version None)
Quarter: 2009Q2

REPORT INFORMATION
  Report Type: 
  Country: None (occurrence: None)
  Receive Date: 20090612
  Receipt Date: 20090402
  Transmission Date: 20091009
  Serious: No
  Sender: FDA-Public Use
  Company Number: US-ABBOTT-09P-163-0566635-00

PATIENT
  Sex: Male
  Weight: 80.358 kg

DRUGS (8)
  1. HUMIRA [Suspect]
     Indication: CROHN'S DISEASE
     Route: 058
     Dates: start: 20080301
  2. ASCORBIC ACID [Concomitant]
     Indication: VITAMIN SUPPLEMENTATION
     Dosage: UNKNOWN
     Route: 042
     Dates: start: 20060101
  3. PREDNISONE [Concomitant]
     Indication: CROHN'S DISEASE
     Route: 048
  4. PENTESA [Concomitant]
     Indication: CROHN'S DISEASE
     Route: 048
  5. VITAMIN B-12 [Concomitant]
     Indication: MEDICAL DIET
     Route: 050
  6. FOLIC ACID [Concomitant]
     Indication: MEDICAL DIET
     Dosage: UNKNOWN
     Route: 048
  7. VITAMIN D [Concomitant]
     Indication: MEDICAL DIET
     Route: 048
  8. DSL #3 [Concomitant]
     Indication: MEDICAL DIET
     Dosage: 1 PACKET
     Route: 048

REACTIONS (4)
  - EPISTAXIS [None]
  - FATIGUE [None]
  - JOINT RANGE OF MOTION DECREASED [None]
  - NAUSEA [None]
